FAERS Safety Report 18894497 (Version 4)
Quarter: 2021Q4

REPORT INFORMATION
  Report Type: Report from Study
  Country: BR (occurrence: BR)
  Receive Date: 20210215
  Receipt Date: 20211213
  Transmission Date: 20220303
  Serious: Yes (Other)
  Sender: FDA-Public Use
  Company Number: NVSC2021BR035087

PATIENT
  Age: 56 Year
  Sex: Female
  Weight: 64 kg

DRUGS (5)
  1. COSENTYX [Suspect]
     Active Substance: SECUKINUMAB
     Indication: Psoriatic arthropathy
     Dosage: 300 MG, UNKNOWN
     Route: 065
     Dates: start: 202009
  2. COSENTYX [Suspect]
     Active Substance: SECUKINUMAB
     Dosage: 300 MG (2 INJECTIONS 150 MG), UNKNOWN
     Route: 065
     Dates: start: 20210901
  3. COSENTYX [Suspect]
     Active Substance: SECUKINUMAB
     Dosage: 300 MG, UNKNOWN
     Route: 065
     Dates: start: 20210921
  4. COSENTYX [Suspect]
     Active Substance: SECUKINUMAB
     Dosage: UNK
     Route: 065
  5. VITAMIN B COMPLEX [Concomitant]
     Active Substance: CYANOCOBALAMIN\DEXPANTHENOL\NIACINAMIDE\PYRIDOXINE HYDROCHLORIDE\RIBOFLAVIN 5^-PHOSPHATE SODIUM\THIA
     Indication: Product used for unknown indication
     Dosage: UNK
     Route: 065

REACTIONS (11)
  - Immunodeficiency [Recovered/Resolved]
  - Starvation [Recovered/Resolved]
  - Vertigo [Recovered/Resolved]
  - Illness [Unknown]
  - Dysphonia [Not Recovered/Not Resolved]
  - Hypersensitivity [Unknown]
  - Dysstasia [Recovered/Resolved]
  - Weight decreased [Unknown]
  - Oropharyngeal pain [Unknown]
  - Pharyngeal inflammation [Recovered/Resolved]
  - Aphonia [Recovered/Resolved]

NARRATIVE: CASE EVENT DATE: 20210105
